FAERS Safety Report 15550045 (Version 1)
Quarter: 2018Q4

REPORT INFORMATION
  Report Type: Spontaneous
  Country: US (occurrence: US)
  Receive Date: 20181025
  Receipt Date: 20181025
  Transmission Date: 20190205
  Serious: Yes (Other)
  Sender: FDA-Public Use
  Company Number: US-ROCHE-2204938

PATIENT
  Age: 66 Year
  Sex: Female

DRUGS (1)
  1. TECENTRIQ [Suspect]
     Active Substance: ATEZOLIZUMAB
     Indication: OVARIAN CANCER STAGE III
     Route: 065
     Dates: start: 2018

REACTIONS (3)
  - Intentional product use issue [Unknown]
  - Demyelinating polyneuropathy [Unknown]
  - Off label use [Unknown]

NARRATIVE: CASE EVENT DATE: 201809
